FAERS Safety Report 15079605 (Version 2)
Quarter: 2018Q3

REPORT INFORMATION
  Report Type: Spontaneous
  Country: IN (occurrence: IN)
  Receive Date: 20180627
  Receipt Date: 20180725
  Transmission Date: 20181010
  Serious: Yes (Hospitalization)
  Sender: FDA-Public Use
  Company Number: IN-GE HEALTHCARE LIFE SCIENCES-2018CSU002542

PATIENT

DRUGS (1)
  1. OMNIPAQUE [Suspect]
     Active Substance: IOHEXOL
     Indication: PRODUCT USED FOR UNKNOWN INDICATION
     Dosage: 70 ML, SINGLE
     Route: 042
     Dates: start: 20180615, end: 20180615

REACTIONS (2)
  - Blood pressure decreased [Recovered/Resolved with Sequelae]
  - Pneumothorax [Recovered/Resolved with Sequelae]

NARRATIVE: CASE EVENT DATE: 20180615
